FAERS Safety Report 15131145 (Version 1)
Quarter: 2018Q3

REPORT INFORMATION
  Report Type: Spontaneous
  Country: US (occurrence: US)
  Receive Date: 20180711
  Receipt Date: 20180711
  Transmission Date: 20181010
  Serious: No
  Sender: FDA-Public Use
  Company Number: US-NEOS THERAPEUTICS, LP-2018NEO00059

PATIENT

DRUGS (1)
  1. COTEMPLA XR?ODT [Suspect]
     Active Substance: METHYLPHENIDATE
     Dosage: UNK, UNK
     Route: 065

REACTIONS (1)
  - Dyspepsia [Unknown]
